FAERS Safety Report 13975774 (Version 2)
Quarter: 2018Q1

REPORT INFORMATION
  Report Type: Spontaneous
  Country: US (occurrence: US)
  Receive Date: 20170915
  Receipt Date: 20180117
  Transmission Date: 20180508
  Serious: No
  Sender: FDA-Public Use
  Company Number: US-PFIZER INC-2017397488

PATIENT
  Age: 57 Year
  Sex: Female

DRUGS (2)
  1. IBRANCE [Suspect]
     Active Substance: PALBOCICLIB
     Indication: BREAST CANCER FEMALE
     Dosage: 75 MG, CYCLIC (75 MG, TAKE 1 CAPSULE BY MOUTH DAILY ON DAYS 1-21 AND REST 7 DAYS)
     Route: 048
  2. FASLODEX [Concomitant]
     Active Substance: FULVESTRANT
     Dosage: 250 MG, UNK

REACTIONS (1)
  - Neoplasm progression [Not Recovered/Not Resolved]
